APPROVED DRUG PRODUCT: SPECTROBID
Active Ingredient: BACAMPICILLIN HYDROCHLORIDE
Strength: 400MG
Dosage Form/Route: TABLET;ORAL
Application: N050520 | Product #001
Applicant: PFIZER LABORATORIES DIV PFIZER INC
Approved: Approved Prior to Jan 1, 1982 | RLD: No | RS: No | Type: DISCN